FAERS Safety Report 5159615-8 (Version None)
Quarter: 2006Q4

REPORT INFORMATION
  Report Type: 
  Country: None (occurrence: None)
  Receive Date: 20061129
  Receipt Date: 20060707
  Transmission Date: 20070319
  Serious: Yes (Hospitalization)
  Sender: FDA-Public Use
  Company Number: PHNR2006AU01129

PATIENT
  Age: 44 Year
  Sex: Female

DRUGS (7)
  1. INSULIN [Concomitant]
  2. ACETAMINOPHEN W/ CODEINE [Concomitant]
  3. OLANZAPINE [Concomitant]
  4. GABAPENTIN [Concomitant]
  5. DIAZEPAM [Concomitant]
  6. OXYCODONE HCL [Concomitant]
  7. TEGRETOL [Suspect]
     Indication: TRIGEMINAL NEURALGIA
     Dosage: 400 MG, TID

REACTIONS (3)
  - FLUID INTAKE RESTRICTION [None]
  - HYPONATRAEMIA [None]
  - POLYDIPSIA PSYCHOGENIC [None]
